FAERS Safety Report 20594366 (Version 1)
Quarter: 2022Q1

REPORT INFORMATION
  Report Type: Spontaneous
  Country: GB (occurrence: GB)
  Receive Date: 20220315
  Receipt Date: 20220315
  Transmission Date: 20220424
  Serious: Yes (Disabling, Other)
  Sender: FDA-Public Use
  Company Number: None

PATIENT
  Sex: Female

DRUGS (8)
  1. PROTOPIC [Suspect]
     Active Substance: TACROLIMUS
     Indication: Product used for unknown indication
     Dosage: NOT REPORTED
  2. BETNOVATE [Suspect]
     Active Substance: BETAMETHASONE
     Indication: Eczema
     Dates: end: 20220205
  3. TRETINOIN [Suspect]
     Active Substance: TRETINOIN
     Indication: Product used for unknown indication
  4. BETAMETHASONE VALERATE [Suspect]
     Active Substance: BETAMETHASONE VALERATE
     Indication: Product used for unknown indication
  5. CLOBETASOL [Suspect]
     Active Substance: CLOBETASOL
     Indication: Product used for unknown indication
  6. HYDROCORTISONE [Suspect]
     Active Substance: HYDROCORTISONE
     Indication: Product used for unknown indication
  7. MOMETASONE FUROATE [Suspect]
     Active Substance: MOMETASONE FUROATE
     Indication: Product used for unknown indication
     Dates: start: 20190101, end: 20220204
  8. HYDROQUINONE [Suspect]
     Active Substance: HYDROQUINONE
     Indication: Product used for unknown indication

REACTIONS (7)
  - Insomnia [Not Recovered/Not Resolved]
  - Skin weeping [Not Recovered/Not Resolved]
  - Rash erythematous [Not Recovered/Not Resolved]
  - Skin exfoliation [Not Recovered/Not Resolved]
  - Pruritus [Not Recovered/Not Resolved]
  - Neuralgia [Not Recovered/Not Resolved]
  - Skin burning sensation [Not Recovered/Not Resolved]
